FAERS Safety Report 24082413 (Version 1)
Quarter: 2024Q3

REPORT INFORMATION
  Report Type: Spontaneous
  Country: US (occurrence: US)
  Receive Date: 20240712
  Receipt Date: 20240712
  Transmission Date: 20241017
  Serious: No
  Sender: ENDO
  Company Number: US-ENDO PHARMACEUTICALS INC-2024-001135

PATIENT
  Sex: Female

DRUGS (5)
  1. OPANA ER [Suspect]
     Active Substance: OXYMORPHONE HYDROCHLORIDE
     Indication: Breakthrough pain
     Dosage: UNK UNKNOWN, UNKNOWN
     Route: 065
  2. OXYMORPHONE [Suspect]
     Active Substance: OXYMORPHONE
     Indication: Breakthrough pain
     Dosage: UNK UNKNOWN, UNKNOWN
     Route: 065
  3. OXYMORPHONE [Suspect]
     Active Substance: OXYMORPHONE
     Indication: Breakthrough pain
     Dosage: UNK UNKNOWN, UNKNOWN
     Route: 065
  4. OXYMORPHONE [Suspect]
     Active Substance: OXYMORPHONE
     Indication: Breakthrough pain
     Dosage: UNK UNKNOWN, UNKNOWN
     Route: 065
  5. OXYMORPHONE [Suspect]
     Active Substance: OXYMORPHONE
     Indication: Breakthrough pain
     Dosage: UNK UNKNOWN, UNKNOWN
     Route: 065

REACTIONS (1)
  - Eye disorder [Unknown]
